FAERS Safety Report 23531933 (Version 2)
Quarter: 2024Q1

REPORT INFORMATION
  Report Type: Other
  Country: JP (occurrence: JP)
  Receive Date: 20240216
  Receipt Date: 20240318
  Transmission Date: 20240409
  Serious: Yes (Other)
  Sender: FDA-Public Use
  Company Number: JP-CHUGAI-2024004121

PATIENT
  Age: 59 Year
  Sex: Male
  Weight: 92.8 kg

DRUGS (27)
  1. POLIVY [Suspect]
     Active Substance: POLATUZUMAB VEDOTIN-PIIQ
     Indication: Diffuse large B-cell lymphoma
     Route: 065
     Dates: start: 20230526, end: 20230526
  2. POLIVY [Suspect]
     Active Substance: POLATUZUMAB VEDOTIN-PIIQ
     Route: 065
     Dates: start: 20230628, end: 20230628
  3. POLIVY [Suspect]
     Active Substance: POLATUZUMAB VEDOTIN-PIIQ
     Dosage: 167 MILLIGRAM
     Route: 065
     Dates: start: 20230725, end: 20230725
  4. POLIVY [Suspect]
     Active Substance: POLATUZUMAB VEDOTIN-PIIQ
     Dosage: 167 MILLIGRAM
     Route: 065
     Dates: start: 20230815, end: 20230815
  5. POLIVY [Suspect]
     Active Substance: POLATUZUMAB VEDOTIN-PIIQ
     Dosage: 133 MILLIGRAM
     Route: 065
     Dates: start: 20231023, end: 20231023
  6. POLIVY [Suspect]
     Active Substance: POLATUZUMAB VEDOTIN-PIIQ
     Dosage: 133 MILLIGRAM
     Route: 065
     Dates: start: 20231122, end: 20231122
  7. RITUXIMAB [Concomitant]
     Active Substance: RITUXIMAB
     Indication: Diffuse large B-cell lymphoma
     Dosage: 773 MILLIGRAM
     Route: 065
     Dates: start: 20230525, end: 20230525
  8. RITUXIMAB [Concomitant]
     Active Substance: RITUXIMAB
     Dosage: 773 MILLIGRAM
     Route: 065
     Dates: start: 20230625, end: 20230625
  9. RITUXIMAB [Concomitant]
     Active Substance: RITUXIMAB
     Dosage: 773 MILLIGRAM
     Route: 065
     Dates: start: 20230724, end: 20230724
  10. RITUXIMAB [Concomitant]
     Active Substance: RITUXIMAB
     Dosage: 773 MILLIGRAM
     Route: 065
     Dates: start: 20230814, end: 20230814
  11. RITUXIMAB [Concomitant]
     Active Substance: RITUXIMAB
     Dosage: 773 MILLIGRAM
     Route: 065
     Dates: start: 20231020, end: 20231020
  12. RITUXIMAB [Concomitant]
     Active Substance: RITUXIMAB
     Dosage: 773 MILLIGRAM
     Route: 065
     Dates: start: 20231117, end: 20231117
  13. CYCLOPHOSPHAMIDE [Concomitant]
     Active Substance: CYCLOPHOSPHAMIDE
     Indication: Diffuse large B-cell lymphoma
     Dosage: 1546 MILLIGRAM
     Route: 065
     Dates: start: 20230526, end: 20230526
  14. CYCLOPHOSPHAMIDE [Concomitant]
     Active Substance: CYCLOPHOSPHAMIDE
     Dosage: 1500 MILLIGRAM
     Dates: start: 20230628, end: 20230628
  15. CYCLOPHOSPHAMIDE [Concomitant]
     Active Substance: CYCLOPHOSPHAMIDE
     Dosage: 1500 MILLIGRAM
     Dates: start: 20230725, end: 20230725
  16. CYCLOPHOSPHAMIDE [Concomitant]
     Active Substance: CYCLOPHOSPHAMIDE
     Dosage: 1500 MILLIGRAM
     Dates: start: 20230815, end: 20230815
  17. CYCLOPHOSPHAMIDE [Concomitant]
     Active Substance: CYCLOPHOSPHAMIDE
     Dosage: 1200 MILLIGRAM
     Dates: start: 20231023, end: 20231023
  18. CYCLOPHOSPHAMIDE [Concomitant]
     Active Substance: CYCLOPHOSPHAMIDE
     Dosage: 1200 MILLIGRAM
     Dates: start: 20231120, end: 20231120
  19. DOXORUBICIN HYDROCHLORIDE [Concomitant]
     Active Substance: DOXORUBICIN HYDROCHLORIDE
     Indication: Diffuse large B-cell lymphoma
     Dosage: 100 MILLIGRAM
     Route: 065
     Dates: start: 20230526, end: 20230526
  20. DOXORUBICIN HYDROCHLORIDE [Concomitant]
     Active Substance: DOXORUBICIN HYDROCHLORIDE
     Dosage: 100 MILLIGRAM
     Dates: start: 20230628, end: 20230628
  21. DOXORUBICIN HYDROCHLORIDE [Concomitant]
     Active Substance: DOXORUBICIN HYDROCHLORIDE
     Dosage: 100 MILLIGRAM
     Dates: start: 20230725, end: 20230725
  22. DOXORUBICIN HYDROCHLORIDE [Concomitant]
     Active Substance: DOXORUBICIN HYDROCHLORIDE
     Dosage: 100 MILLIGRAM
     Dates: start: 20230815, end: 20230815
  23. DOXORUBICIN HYDROCHLORIDE [Concomitant]
     Active Substance: DOXORUBICIN HYDROCHLORIDE
     Dosage: 80 MILLIGRAM
     Dates: start: 20231023, end: 20231023
  24. DOXORUBICIN HYDROCHLORIDE [Concomitant]
     Active Substance: DOXORUBICIN HYDROCHLORIDE
     Dosage: 80 MILLIGRAM
     Dates: start: 20231120, end: 20231120
  25. PREDNISOLONE [Concomitant]
     Active Substance: PREDNISOLONE
     Indication: Diffuse large B-cell lymphoma
     Dosage: 100 MILLIGRAM
     Dates: start: 20230526, end: 20230530
  26. PREDNISOLONE [Concomitant]
     Active Substance: PREDNISOLONE
     Dosage: 30 MILLIGRAM
     Dates: start: 20230628, end: 20230702
  27. FILGRASTIM [Concomitant]
     Active Substance: FILGRASTIM

REACTIONS (6)
  - Rectal cancer [Unknown]
  - Aspartate aminotransferase increased [Recovered/Resolved]
  - Alanine aminotransferase increased [Recovered/Resolved]
  - Gamma-glutamyltransferase increased [Recovered/Resolved]
  - Diabetes mellitus [Unknown]
  - COVID-19 [Unknown]

NARRATIVE: CASE EVENT DATE: 20230701
